FAERS Safety Report 6808172-6 (Version None)
Quarter: 2010Q2

REPORT INFORMATION
  Report Type: 
  Country: None (occurrence: None)
  Receive Date: 20100629
  Receipt Date: 20090511
  Transmission Date: 20101027
  Serious: No
  Sender: FDA-Public Use
  Company Number: US-PFIZER INC-2009170755

PATIENT
  Sex: Male
  Weight: 113.39 kg

DRUGS (2)
  1. ALPRAZOLAM [Suspect]
     Indication: ANXIETY
     Dosage: UNK
     Dates: start: 20080101
  2. TYLENOL [Concomitant]
     Dosage: UNK

REACTIONS (1)
  - ANXIETY [None]
